FAERS Safety Report 17715636 (Version 2)
Quarter: 2020Q2

REPORT INFORMATION
  Report Type: Spontaneous
  Country: US (occurrence: US)
  Receive Date: 20200427
  Receipt Date: 20200610
  Transmission Date: 20200714
  Serious: No
  Sender: FDA-Public Use
  Company Number: US-VIFOR (INTERNATIONAL) INC.-VIT-2020-05160

PATIENT
  Age: 74 Year
  Sex: Male

DRUGS (7)
  1. SENSIPAR [Concomitant]
     Active Substance: CINACALCET HYDROCHLORIDE
  2. ALLOPURINOL. [Concomitant]
     Active Substance: ALLOPURINOL
  3. FOSRENOL [Concomitant]
     Active Substance: LANTHANUM CARBONATE
     Indication: BLOOD PRESSURE MEASUREMENT
  4. HYDRALAZINE [Concomitant]
     Active Substance: HYDRALAZINE HYDROCHLORIDE
  5. VELTASSA [Suspect]
     Active Substance: PATIROMER
     Indication: HYPERKALAEMIA
     Route: 048
     Dates: start: 2019
  6. VELTASSA [Suspect]
     Active Substance: PATIROMER
     Route: 048
  7. LASIX [Concomitant]
     Active Substance: FUROSEMIDE

REACTIONS (4)
  - Blood potassium abnormal [Unknown]
  - Inappropriate schedule of product administration [Unknown]
  - Off label use [Unknown]
  - Wrong technique in product usage process [Unknown]
